FAERS Safety Report 11772071 (Version 1)
Quarter: 2015Q4

REPORT INFORMATION
  Report Type: Other
  Country: FR (occurrence: FR)
  Receive Date: 20151124
  Receipt Date: 20151124
  Transmission Date: 20160304
  Serious: Yes (Hospitalization)
  Sender: FDA-Public Use
  Company Number: FR-SYMPLMED PHARMACEUTICALS-2015SYMPLMED000083

PATIENT

DRUGS (14)
  1. AUGMENTIN [Suspect]
     Active Substance: AMOXICILLIN\CLAVULANATE POTASSIUM
     Indication: LUNG DISORDER
     Dosage: UNK
     Route: 048
     Dates: start: 20150611, end: 20150615
  2. VANCOMYCIN                         /00314402/ [Suspect]
     Active Substance: VANCOMYCIN
     Dosage: UNK
     Route: 048
     Dates: start: 20150629, end: 20150711
  3. ALDACTONE [Suspect]
     Active Substance: SPIRONOLACTONE
     Indication: PRODUCT USED FOR UNKNOWN INDICATION
     Dosage: UNK
     Route: 048
     Dates: start: 20150718, end: 20150805
  4. COVERSYL [Suspect]
     Active Substance: PERINDOPRIL
     Indication: PRODUCT USED FOR UNKNOWN INDICATION
     Dosage: UNK
     Route: 048
     Dates: start: 20150609
  5. INNOHEP [Suspect]
     Active Substance: TINZAPARIN SODIUM
     Indication: PRODUCT USED FOR UNKNOWN INDICATION
     Dosage: UNK
     Route: 058
     Dates: start: 20150722, end: 20150805
  6. RIFAMPICIN                         /00146902/ [Suspect]
     Active Substance: RIFAMPIN
     Indication: LUNG DISORDER
     Dosage: UNK
     Route: 048
     Dates: start: 20150615, end: 20150625
  7. TAZOCILLINE [Suspect]
     Active Substance: PIPERACILLIN SODIUM\TAZOBACTAM SODIUM
     Indication: LUNG DISORDER
     Dosage: UNK
     Route: 048
     Dates: start: 20150629, end: 20150711
  8. AMLOR [Suspect]
     Active Substance: AMLODIPINE BESYLATE
     Indication: PRODUCT USED FOR UNKNOWN INDICATION
     Dosage: 10 MG, QD
     Route: 048
     Dates: start: 20150609, end: 20150707
  9. CIFLOX /00697203/ [Suspect]
     Active Substance: CIPROFLOXACIN LACTATE
     Indication: LUNG DISORDER
     Dosage: UNK
     Route: 048
     Dates: start: 20150629, end: 20150711
  10. RISPERDAL [Suspect]
     Active Substance: RISPERIDONE
     Indication: PRODUCT USED FOR UNKNOWN INDICATION
     Dosage: UNK
     Route: 048
     Dates: start: 20150715, end: 20150805
  11. VANCOMYCIN                         /00314402/ [Suspect]
     Active Substance: VANCOMYCIN
     Indication: LUNG DISORDER
     Dosage: UNK
     Route: 048
     Dates: start: 20150615, end: 20150625
  12. TREDEMINE [Suspect]
     Active Substance: NICLOSAMIDE
     Indication: TAENIASIS
     Dosage: 500 MG, UNK
     Route: 048
     Dates: start: 20150625, end: 20150625
  13. COVERSYL [Suspect]
     Active Substance: PERINDOPRIL
     Dosage: UNK
     Route: 048
     Dates: start: 20150813
  14. XATRAL [Suspect]
     Active Substance: ALFUZOSIN
     Indication: PRODUCT USED FOR UNKNOWN INDICATION
     Dosage: UNK
     Route: 048
     Dates: start: 20150721, end: 20150805

REACTIONS (4)
  - Hepatomegaly [Unknown]
  - Hepatocellular injury [Recovering/Resolving]
  - Renal failure [Unknown]
  - Lung disorder [Unknown]

NARRATIVE: CASE EVENT DATE: 20150611
